FAERS Safety Report 6957795-2 (Version None)
Quarter: 2010Q3

REPORT INFORMATION
  Report Type: 
  Country: None (occurrence: None)
  Receive Date: 20100830
  Receipt Date: 20100830
  Transmission Date: 20110219
  Serious: No
  Sender: FDA-Public Use
  Company Number: None

PATIENT
  Sex: Female
  Weight: 71.6683 kg

DRUGS (1)
  1. LUPRON [Suspect]
     Indication: MENSTRUAL DISORDER
     Dates: start: 20080110, end: 20080404

REACTIONS (2)
  - MOVEMENT DISORDER [None]
  - PAIN [None]
